FAERS Safety Report 9364330 (Version 2)
Quarter: 2013Q3

REPORT INFORMATION
  Report Type: Spontaneous
  Country: US (occurrence: None)
  Receive Date: 20130619
  Receipt Date: 20130703
  Transmission Date: 20140515
  Serious: Yes (Other)
  Sender: FDA-Public Use
  Company Number: JPI-P-032987

PATIENT
  Age: 57 Year
  Sex: Female
  Weight: 107.05 kg

DRUGS (9)
  1. XYREM (500 MILLIGRAM/MILLILITERS, SOLUTION) (SODIUM OXYBATE) [Suspect]
     Indication: CATAPLEXY
     Route: 048
     Dates: start: 20120908
  2. XYREM (500 MILLIGRAM/MILLILITERS, SOLUTION) (SODIUM OXYBATE) [Suspect]
     Indication: SOMNOLENCE
     Route: 048
     Dates: start: 20120908
  3. LEVOTHYROXINE [Concomitant]
  4. TAMOXIFEN [Concomitant]
  5. OMEGA-3-ACID ETHYL ESTERS [Concomitant]
  6. KRILL OIL [Concomitant]
  7. VITAMIN D3 [Concomitant]
  8. SILODOSIN [Concomitant]
  9. VITAMIN B 12 [Concomitant]

REACTIONS (1)
  - Influenza [None]
